FAERS Safety Report 5945276-4 (Version None)
Quarter: 2008Q4

REPORT INFORMATION
  Report Type: 
  Country: None (occurrence: None)
  Receive Date: 20081107
  Receipt Date: 20081027
  Transmission Date: 20090506
  Serious: Yes (Hospitalization)
  Sender: FDA-Public Use
  Company Number: DE-ELI_LILLY_AND_COMPANY-DE200806006108

PATIENT
  Age: 55 Year
  Sex: Female

DRUGS (7)
  1. CYMBALTA [Suspect]
     Indication: DEPRESSION
     Dosage: 60 MG, DAILY (1/D)
     Route: 048
     Dates: start: 20080514, end: 20080601
  2. CYMBALTA [Interacting]
     Dosage: 30 MG, DAILY (1/D)
     Route: 048
     Dates: start: 20080601, end: 20080915
  3. CYMBALTA [Interacting]
     Dosage: 60 MG, DAILY (1/D)
     Route: 048
     Dates: start: 20080916
  4. FLUOXETINE HCL [Interacting]
     Dosage: 40 MG, DAILY (1/D)
     Route: 065
     Dates: start: 20060101, end: 20080507
  5. FLUOXETINE HCL [Interacting]
     Dosage: 20 MG, DAILY (1/D)
     Route: 065
     Dates: start: 20080508, end: 20080514
  6. TRIMIPRAMINE MALEATE [Concomitant]
     Dosage: UNK, 12.5 - 25 MG EACH EVENING
     Route: 065
     Dates: start: 20080514
  7. TRAMADOL HCL [Concomitant]
     Indication: FIBROMYALGIA
     Dosage: UNK, 2-4 PER DAY 30-40 MG
     Route: 042

REACTIONS (4)
  - DRUG INTERACTION [None]
  - HYPOKALAEMIA [None]
  - SEROTONIN SYNDROME [None]
  - URINARY TRACT INFECTION [None]
